FAERS Safety Report 19086745 (Version 1)
Quarter: 2021Q2

REPORT INFORMATION
  Report Type: Spontaneous
  Country: US (occurrence: US)
  Receive Date: 20210401
  Receipt Date: 20210401
  Transmission Date: 20210717
  Serious: Yes (Death, Hospitalization)
  Sender: FDA-Public Use
  Company Number: None

PATIENT
  Age: 56 Year
  Sex: Female
  Weight: 64.14 kg

DRUGS (2)
  1. GEMCITABINE HYDROCHLORIDE. [Suspect]
     Active Substance: GEMCITABINE HYDROCHLORIDE
     Dates: end: 20210211
  2. CISPLATIN. [Suspect]
     Active Substance: CISPLATIN
     Dates: end: 20210211

REACTIONS (3)
  - Septic shock [None]
  - Cholangitis [None]
  - Bacterial translocation [None]

NARRATIVE: CASE EVENT DATE: 20210315
